FAERS Safety Report 5234933-3 (Version None)
Quarter: 2007Q1

REPORT INFORMATION
  Report Type: 
  Country: None (occurrence: None)
  Receive Date: 20070209
  Receipt Date: 20070131
  Transmission Date: 20070707
  Serious: Yes (Hospitalization)
  Sender: FDA-Public Use
  Company Number: FR-PFIZER INC-2007009064

PATIENT
  Age: 52 Year
  Sex: Female

DRUGS (2)
  1. ZOLOFT [Suspect]
     Route: 048
  2. ATHYMIL [Suspect]
     Route: 048
     Dates: start: 20051001, end: 20060730

REACTIONS (7)
  - CONFUSIONAL STATE [None]
  - DISORIENTATION [None]
  - FALL [None]
  - MIDDLE INSOMNIA [None]
  - SELF-MEDICATION [None]
  - TENDON RUPTURE [None]
  - WOUND [None]
